FAERS Safety Report 8880229 (Version 4)
Quarter: 2013Q3

REPORT INFORMATION
  Report Type: Spontaneous
  Country: US (occurrence: US)
  Receive Date: 20121031
  Receipt Date: 20130923
  Transmission Date: 20140515
  Serious: Yes (Hospitalization, Disabling, Other)
  Sender: FDA-Public Use
  Company Number: US-009507513-1210USA012632

PATIENT
  Sex: Female
  Weight: 77.98 kg

DRUGS (1)
  1. NUVARING [Suspect]
     Indication: CONTRACEPTION
     Dosage: UNK
     Route: 067
     Dates: start: 201009, end: 201010

REACTIONS (24)
  - Cholecystectomy [Unknown]
  - Pulmonary embolism [Unknown]
  - Maternal exposure before pregnancy [Unknown]
  - Thrombosis [Unknown]
  - Depression [Unknown]
  - Syncope [Unknown]
  - Candida infection [Unknown]
  - Anxiety [Unknown]
  - Substance abuse [Unknown]
  - Deep vein thrombosis [Unknown]
  - Upper-airway cough syndrome [Unknown]
  - Thrombophlebitis superficial [Unknown]
  - Deep vein thrombosis [Unknown]
  - Vena cava filter insertion [Unknown]
  - Deep vein thrombosis [Unknown]
  - Lymphadenopathy [Unknown]
  - Pharyngitis [Unknown]
  - Rash [Unknown]
  - Nausea [Unknown]
  - Dysthymic disorder [Unknown]
  - Contusion [Unknown]
  - Contusion [Unknown]
  - Cor pulmonale chronic [Unknown]
  - Mitral valve disease [Unknown]
